FAERS Safety Report 4858146-X (Version None)
Quarter: 2005Q4

REPORT INFORMATION
  Report Type: 
  Country: None (occurrence: None)
  Receive Date: 20051219
  Receipt Date: 20050316
  Transmission Date: 20060501
  Serious: No
  Sender: FDA-Public Use
  Company Number: US-GLAXOSMITHKLINE-A0549969A

PATIENT
  Age: 39 Year
  Sex: Female

DRUGS (2)
  1. NICODERM CQ [Suspect]
  2. NICODERM CQ [Suspect]
     Dates: start: 20050306

REACTIONS (5)
  - ABNORMAL DREAMS [None]
  - APPLICATION SITE WARMTH [None]
  - NIGHTMARE [None]
  - PALPITATIONS [None]
  - TREMOR [None]
